FAERS Safety Report 9863405 (Version 1)
Quarter: 2014Q1

REPORT INFORMATION
  Report Type: Spontaneous
  Country: US (occurrence: US)
  Receive Date: 20140203
  Receipt Date: 20140203
  Transmission Date: 20141002
  Serious: Yes (Hospitalization)
  Sender: FDA-Public Use
  Company Number: US-BAYER-2014-017037

PATIENT
  Age: 43 Year
  Sex: Female

DRUGS (10)
  1. YASMIN [Suspect]
     Indication: DYSMENORRHOEA
  2. YASMIN [Suspect]
     Indication: MENORRHAGIA
  3. MECLIZINE [Concomitant]
     Indication: DIZZINESS
     Dosage: 12.5 MG, UNK
     Route: 048
  4. HYDROCODONE W/APAP [Concomitant]
     Dosage: 5 -500 MG
     Route: 048
     Dates: start: 20070627
  5. NAPROXEN [Concomitant]
     Dosage: 500 MG, UNK
     Route: 048
     Dates: start: 20070627
  6. PROMETHAZINE [Concomitant]
     Dosage: 25 MG, UNK
     Route: 048
     Dates: start: 20070801
  7. DICLOFENAC [Concomitant]
     Dosage: 75 MG, UNK
     Route: 048
     Dates: start: 20070823
  8. METHYLPREDNISOLONE [Concomitant]
     Indication: PLANTAR FASCIITIS
     Dosage: 4 MG, UNK
     Route: 048
     Dates: start: 20070827
  9. ZOLOFT [Concomitant]
     Route: 048
  10. TOPROL [Concomitant]
     Route: 048

REACTIONS (1)
  - Deep vein thrombosis [None]
